FAERS Safety Report 4341533-6 (Version None)
Quarter: 2004Q2

REPORT INFORMATION
  Report Type: 
  Country: None (occurrence: None)
  Receive Date: 20040415
  Receipt Date: 20040330
  Transmission Date: 20050107
  Serious: Yes (Hospitalization)
  Sender: FDA-Public Use
  Company Number: ATO-04-0302

PATIENT
  Age: 66 Year
  Sex: Female

DRUGS (2)
  1. TRISENOX [Suspect]
     Indication: METASTATIC NEOPLASM
     Dosage: IVI
     Route: 042
  2. DIGOXIN [Suspect]

REACTIONS (5)
  - CARDIAC DISORDER [None]
  - ELECTROLYTE IMBALANCE [None]
  - HYPERMAGNESAEMIA [None]
  - RENAL FAILURE [None]
  - THERAPEUTIC AGENT TOXICITY [None]
